FAERS Safety Report 23406754 (Version 3)
Quarter: 2024Q2

REPORT INFORMATION
  Report Type: Spontaneous
  Country: US (occurrence: US)
  Receive Date: 20240116
  Receipt Date: 20240417
  Transmission Date: 20240716
  Serious: No
  Sender: FDA-Public Use
  Company Number: US-PFIZER INC-PV202300119215

PATIENT
  Age: 79 Year
  Sex: Female

DRUGS (4)
  1. BRAFTOVI [Suspect]
     Active Substance: ENCORAFENIB
     Indication: Colon cancer
     Dosage: TAKE 1 TABLET PO (PER ORAL) DAILY
     Route: 048
  2. BRAFTOVI [Suspect]
     Active Substance: ENCORAFENIB
     Dosage: TAKE 3 CAPSULES BY MOUTH DAILY
     Route: 048
  3. BRAFTOVI [Suspect]
     Active Substance: ENCORAFENIB
     Dosage: TAKE 4 CAPSULES BY MOUTH DAILY
     Route: 048
     Dates: start: 2022, end: 202402
  4. ERBITUX [Concomitant]
     Active Substance: CETUXIMAB
     Indication: Neoplasm malignant
     Dosage: UNK, DAILY
     Route: 042
     Dates: start: 2022, end: 202402

REACTIONS (3)
  - Neoplasm progression [Unknown]
  - Product prescribing error [Unknown]
  - Lymphadenopathy [Unknown]
